FAERS Safety Report 5406632-6 (Version None)
Quarter: 2007Q3

REPORT INFORMATION
  Report Type: 
  Country: None (occurrence: None)
  Receive Date: 20070806
  Receipt Date: 20070725
  Transmission Date: 20080115
  Serious: Yes (Death)
  Sender: FDA-Public Use
  Company Number: JP-PFIZER INC-2007063112

PATIENT
  Age: 85 Year
  Sex: Female

DRUGS (2)
  1. ATARAX [Suspect]
     Dosage: DAILY DOSE:25MG
     Route: 042
  2. LASIX [Suspect]
     Dosage: DAILY DOSE:20MG
     Route: 048

REACTIONS (1)
  - CARDIAC FAILURE [None]
